FAERS Safety Report 17728443 (Version 1)
Quarter: 2020Q2

REPORT INFORMATION
  Report Type: Report from Study
  Country: IL (occurrence: IL)
  Receive Date: 20200430
  Receipt Date: 20200430
  Transmission Date: 20200714
  Serious: Yes (Hospitalization)
  Sender: FDA-Public Use
  Company Number: IL-ACTELION-A-CH2019-195257

PATIENT
  Age: 45 Year
  Sex: Male

DRUGS (9)
  1. UPTRAVI [Suspect]
     Active Substance: SELEXIPAG
     Indication: PULMONARY ARTERIAL HYPERTENSION
     Dosage: 800 MCG, BID
     Route: 048
     Dates: start: 20190819, end: 20190901
  2. UPTRAVI [Suspect]
     Active Substance: SELEXIPAG
     Dosage: 600 MCG, BID
     Route: 048
     Dates: start: 20190901
  3. UPTRAVI [Suspect]
     Active Substance: SELEXIPAG
     Dosage: 200 MCG, BID
     Route: 048
     Dates: start: 20190721, end: 20190819
  4. COUMADIN [Concomitant]
     Active Substance: WARFARIN SODIUM
  5. SPIRONOLACTON [Concomitant]
     Active Substance: SPIRONOLACTONE
  6. FUSID [Concomitant]
  7. TRITACE [Concomitant]
     Active Substance: RAMIPRIL
  8. VOLIBRIS [Concomitant]
     Active Substance: AMBRISENTAN
  9. DIULO [Concomitant]
     Active Substance: METOLAZONE

REACTIONS (6)
  - Neck pain [Not Recovered/Not Resolved]
  - Pyrexia [Recovered/Resolved with Sequelae]
  - Oedema peripheral [Recovered/Resolved]
  - Headache [Not Recovered/Not Resolved]
  - Pneumonia [Recovered/Resolved with Sequelae]
  - Diarrhoea [Recovering/Resolving]

NARRATIVE: CASE EVENT DATE: 20190819
